FAERS Safety Report 10752132 (Version 1)
Quarter: 2015Q1

REPORT INFORMATION
  Report Type: Spontaneous
  Country: US (occurrence: None)
  Receive Date: 20150129
  Receipt Date: 20150129
  Transmission Date: 20150721
  Serious: No
  Sender: FDA-Public Use
  Company Number: None

PATIENT
  Age: 2 Year
  Sex: Female
  Weight: 10.89 kg

DRUGS (1)
  1. BUDESONIDE INHALATION [Suspect]
     Active Substance: BUDESONIDE
     Indication: BRONCHIAL HYPERREACTIVITY
     Dosage: 1 VIAL
     Route: 055
     Dates: start: 20141219, end: 20141225

REACTIONS (3)
  - Upper respiratory tract infection [None]
  - Ear infection [None]
  - Product deposit [None]
